FAERS Safety Report 12393398 (Version 1)
Quarter: 2016Q2

REPORT INFORMATION
  Report Type: Spontaneous
  Country: US (occurrence: None)
  Receive Date: 20160520
  Receipt Date: 20160520
  Transmission Date: 20160815
  Serious: No
  Sender: FDA-Public Use
  Company Number: None

PATIENT
  Age: 69 Year
  Sex: Female

DRUGS (1)
  1. IBRANCE [Suspect]
     Active Substance: PALBOCICLIB
     Indication: NEOPLASM MALIGNANT
     Dosage: IBRANCE 100MG TAKE 1 CAPSULE DAILY FOR 21 PO
     Route: 048
     Dates: start: 20150730, end: 20160419

REACTIONS (3)
  - White blood cell count decreased [None]
  - Tumour marker increased [None]
  - Drug ineffective [None]

NARRATIVE: CASE EVENT DATE: 20160419
